FAERS Safety Report 13016847 (Version 1)
Quarter: 2016Q4

REPORT INFORMATION
  Report Type: Spontaneous
  Country: US (occurrence: US)
  Receive Date: 20161208
  Receipt Date: 20161208
  Transmission Date: 20170207
  Serious: Yes (Hospitalization)
  Sender: FDA-Public Use
  Company Number: None

PATIENT
  Age: 81 Year
  Sex: Male
  Weight: 80.9 kg

DRUGS (1)
  1. SOFOSBUVIR/VELPATASVIR [Suspect]
     Active Substance: SOFOSBUVIR\VELPATASVIR
     Indication: HEPATITIS C
     Route: 048
     Dates: start: 20161011, end: 20161123

REACTIONS (9)
  - Malaise [None]
  - Hyperkalaemia [None]
  - Asthenia [None]
  - Dyspnoea [None]
  - Acute kidney injury [None]
  - Gastrointestinal motility disorder [None]
  - Fatigue [None]
  - Rectal tenesmus [None]
  - Faeces discoloured [None]

NARRATIVE: CASE EVENT DATE: 20161125
